FAERS Safety Report 7169531-8 (Version None)
Quarter: 2010Q4

REPORT INFORMATION
  Report Type: 
  Country: None (occurrence: None)
  Receive Date: 20101217
  Receipt Date: 20101206
  Transmission Date: 20110411
  Serious: Yes (Hospitalization)
  Sender: FDA-Public Use
  Company Number: US-CELGENEUS-163-20785-10120690

PATIENT
  Sex: Female

DRUGS (19)
  1. THALOMID [Suspect]
     Route: 048
     Dates: start: 20100701, end: 20101001
  2. LOTREL [Concomitant]
     Dosage: 10/40
     Route: 065
  3. LASIX [Concomitant]
     Route: 065
  4. ADVIL [Concomitant]
     Route: 065
  5. COLACE [Concomitant]
     Route: 065
  6. ATENOLOL [Concomitant]
     Route: 065
  7. KLOR-CON [Concomitant]
     Route: 065
  8. PRED FORTE [Concomitant]
     Route: 065
  9. MIRALAX [Concomitant]
     Route: 065
  10. LIPITOR [Concomitant]
     Route: 065
  11. ASPIRIN [Concomitant]
     Route: 065
  12. SINEMET [Concomitant]
     Dosage: 25/100
     Route: 065
  13. ISOSORBIDE DINITRATE [Concomitant]
     Route: 065
  14. LACTULOSE [Concomitant]
     Route: 065
  15. HYDROCODONE [Concomitant]
     Indication: PAIN
     Dosage: 1 TO 2
     Route: 065
  16. COMPAZINE [Concomitant]
     Route: 065
  17. DEXAMETHASONE [Concomitant]
     Route: 065
     Dates: end: 20101001
  18. FENTANYL [Concomitant]
     Route: 065
  19. ZOMETA [Concomitant]
     Route: 065

REACTIONS (1)
  - NON-CARDIAC CHEST PAIN [None]
